APPROVED DRUG PRODUCT: TOPIRAMATE
Active Ingredient: TOPIRAMATE
Strength: 200MG
Dosage Form/Route: TABLET;ORAL
Application: A091185 | Product #004
Applicant: HIKMA PHARMACEUTICALS
Approved: Nov 25, 2013 | RLD: No | RS: No | Type: DISCN